FAERS Safety Report 7258034-8 (Version None)
Quarter: 2011Q1

REPORT INFORMATION
  Report Type: 
  Country: None (occurrence: None)
  Receive Date: 20110129
  Receipt Date: 20100618
  Transmission Date: 20110831
  Serious: No
  Sender: FDA-Public Use
  Company Number: US-ABBOTT-10P-163-0652083-00

PATIENT
  Age: 42 Year
  Sex: Female

DRUGS (4)
  1. BUSPAR [Concomitant]
     Indication: ANXIETY
  2. MOBIC [Concomitant]
     Indication: ARTHRITIS
  3. HUMIRA [Suspect]
     Indication: PSORIATIC ARTHROPATHY
     Dates: start: 20100401
  4. PREMARIN [Concomitant]
     Indication: HORMONE REPLACEMENT THERAPY

REACTIONS (2)
  - BLOOD IRON DECREASED [None]
  - ASTHENIA [None]
